FAERS Safety Report 21979335 (Version 1)
Quarter: 2023Q1

REPORT INFORMATION
  Report Type: Spontaneous
  Country: FR (occurrence: FR)
  Receive Date: 20230210
  Receipt Date: 20230210
  Transmission Date: 20230417
  Serious: Yes (Hospitalization)
  Sender: FDA-Public Use
  Company Number: None

PATIENT
  Age: 39 Year
  Sex: Female
  Weight: 43 kg

DRUGS (3)
  1. CELLCEPT [Suspect]
     Active Substance: MYCOPHENOLATE MOFETIL
     Indication: Renal transplant
     Route: 065
     Dates: start: 20031119, end: 20221210
  2. PREDNISOLONE SODIUM METAZOATE [Concomitant]
     Active Substance: PREDNISOLONE SODIUM METAZOATE
  3. PROGRAF [Concomitant]
     Active Substance: TACROLIMUS

REACTIONS (5)
  - Diarrhoea [Recovered/Resolved]
  - Whipple^s disease [Recovered/Resolved]
  - Vomiting [Recovered/Resolved]
  - Weight decreased [Recovered/Resolved]
  - Gastrointestinal disorder [Recovered/Resolved]

NARRATIVE: CASE EVENT DATE: 20210601
